FAERS Safety Report 7438764-5 (Version None)
Quarter: 2011Q2

REPORT INFORMATION
  Report Type: 
  Country: None (occurrence: None)
  Receive Date: 20110426
  Receipt Date: 20110412
  Transmission Date: 20111010
  Serious: Yes (Life-Threatening, Hospitalization, Other)
  Sender: FDA-Public Use
  Company Number: US-CELGENEUS-163-21880-11022382

PATIENT
  Sex: Male

DRUGS (3)
  1. REVLIMID [Suspect]
     Indication: MULTIPLE MYELOMA
     Dosage: 25 MILLIGRAM
     Route: 048
     Dates: start: 20110114, end: 20110124
  2. DECADRON [Concomitant]
     Dosage: 40 MILLIGRAM
     Route: 065
     Dates: start: 20110101
  3. COUMADIN [Concomitant]
     Route: 065

REACTIONS (2)
  - CARDIAC ARREST [None]
  - MYOCARDIAL INFARCTION [None]
